FAERS Safety Report 4937031-9 (Version None)
Quarter: 2006Q1

REPORT INFORMATION
  Report Type: 
  Country: None (occurrence: None)
  Receive Date: 20060309
  Receipt Date: 20060227
  Transmission Date: 20060701
  Serious: Yes (Life-Threatening, Hospitalization)
  Sender: FDA-Public Use
  Company Number: DE-SANOFI-SYNTHELABO-A04200600239

PATIENT
  Sex: Male
  Weight: 85 kg

DRUGS (1)
  1. STILNOX [Suspect]
     Indication: INITIAL INSOMNIA
     Route: 048
     Dates: start: 20060114, end: 20060114

REACTIONS (3)
  - CONFUSIONAL STATE [None]
  - HALLUCINATION [None]
  - RESPIRATORY FAILURE [None]
